APPROVED DRUG PRODUCT: HYDROCORTISONE
Active Ingredient: HYDROCORTISONE
Strength: 2.5%
Dosage Form/Route: CREAM;TOPICAL
Application: A086271 | Product #001
Applicant: AMBIX LABORATORIES DIV ORGANICS CORP AMERICA
Approved: Approved Prior to Jan 1, 1982 | RLD: No | RS: No | Type: DISCN